FAERS Safety Report 15710928 (Version 2)
Quarter: 2019Q1

REPORT INFORMATION
  Report Type: Report from Study
  Country: KR (occurrence: KR)
  Receive Date: 20181211
  Receipt Date: 20190130
  Transmission Date: 20190417
  Serious: Yes (Other)
  Sender: FDA-Public Use
  Company Number: PHHY2018KR177989

PATIENT
  Sex: Male

DRUGS (2)
  1. VIGAMOX [Suspect]
     Active Substance: MOXIFLOXACIN HYDROCHLORIDE
     Indication: PRODUCT USED FOR UNKNOWN INDICATION
     Dosage: UNK
     Route: 065
  2. LUCENTIS [Suspect]
     Active Substance: RANIBIZUMAB
     Indication: CHOROIDAL NEOVASCULARISATION
     Dosage: UNK
     Route: 031

REACTIONS (6)
  - Conjunctivitis [Unknown]
  - Hypermetropia [Unknown]
  - Chorioretinitis [Unknown]
  - Astigmatism [Unknown]
  - Macular degeneration [Not Recovered/Not Resolved]
  - Retinal oedema [Not Recovered/Not Resolved]
